FAERS Safety Report 5693159-X (Version None)
Quarter: 2008Q2

REPORT INFORMATION
  Report Type: 
  Country: None (occurrence: None)
  Receive Date: 20080402
  Receipt Date: 20080402
  Transmission Date: 20081010
  Serious: No
  Sender: FDA-Public Use
  Company Number: None

PATIENT
  Age: 37 Year
  Sex: Female
  Weight: 163.2949 kg

DRUGS (1)
  1. CHANTIX [Suspect]
     Indication: SMOKING CESSATION THERAPY
     Dosage: 1MG 2 TIMES PER DAY PO
     Route: 048
     Dates: start: 20080318, end: 20080401

REACTIONS (8)
  - ANGER [None]
  - DRY MOUTH [None]
  - DYSGEUSIA [None]
  - EAR CONGESTION [None]
  - NIGHTMARE [None]
  - OTORRHOEA [None]
  - TOBACCO WITHDRAWAL SYMPTOMS [None]
  - TREMOR [None]
